FAERS Safety Report 12526019 (Version 2)
Quarter: 2016Q4

REPORT INFORMATION
  Report Type: Spontaneous
  Country: US (occurrence: US)
  Receive Date: 20160705
  Receipt Date: 20161004
  Transmission Date: 20170207
  Serious: Yes (Other)
  Sender: FDA-Public Use
  Company Number: US-BRISTOL-MYERS SQUIBB COMPANY-BMS-2016-053224

PATIENT
  Sex: Male
  Weight: 154.2 kg

DRUGS (2)
  1. KENALOG-40 [Suspect]
     Active Substance: TRIAMCINOLONE ACETONIDE
     Indication: SEASONAL ALLERGY
     Dosage: 80 MG, UNK
     Route: 030
     Dates: start: 20160227
  2. KENALOG-40 [Suspect]
     Active Substance: TRIAMCINOLONE ACETONIDE
     Dosage: 80 MG, UNK
     Route: 065
     Dates: start: 201603

REACTIONS (9)
  - Blindness [Unknown]
  - Nausea [Unknown]
  - Anxiety [Unknown]
  - Photophobia [Unknown]
  - Depression [Unknown]
  - Headache [Unknown]
  - Eye pain [Unknown]
  - Amnesia [Unknown]
  - Adjustment disorder [Unknown]
